FAERS Safety Report 9269087 (Version 2)
Quarter: 2013Q2

REPORT INFORMATION
  Report Type: Spontaneous
  Country: US (occurrence: None)
  Receive Date: 20130501
  Receipt Date: 20130522
  Transmission Date: 20140414
  Serious: Yes (Death)
  Sender: FDA-Public Use
  Company Number: UTC-031865

PATIENT
  Age: 51 Year
  Sex: Female
  Weight: 106.3 kg

DRUGS (4)
  1. TYVASO (6 MICROGRAM, AEROSOL FOR INHALATION) (TREPROSTINIL SODIUM) [Suspect]
     Indication: PULMONARY ARTERIAL HYPERTENSION
     Dosage: 18-54 MCGS (4 IN 1 D), INHALATION
     Dates: start: 20120621
  2. COUMADIN (WARFARIN SODIUM) [Concomitant]
  3. TRACLEER (BOSENTAN) [Concomitant]
  4. LETAIRIS (AMBRISENTAN) (TABLET) (AMBRISENTAN) [Concomitant]

REACTIONS (1)
  - Ventricular fibrillation [None]
